FAERS Safety Report 6015600-5 (Version None)
Quarter: 2008Q4

REPORT INFORMATION
  Report Type: 
  Country: None (occurrence: None)
  Receive Date: 20081219
  Receipt Date: 20081219
  Transmission Date: 20090506
  Serious: Yes (Hospitalization, Other)
  Sender: FDA-Public Use
  Company Number: None

PATIENT
  Age: 50 Year
  Sex: Female
  Weight: 61.2356 kg

DRUGS (1)
  1. BOTOX [Suspect]
     Indication: MIGRAINE
     Dates: start: 20081210, end: 20081210

REACTIONS (10)
  - AURA [None]
  - DIARRHOEA [None]
  - DIZZINESS [None]
  - FATIGUE [None]
  - HEADACHE [None]
  - HYPOTENSION [None]
  - MIGRAINE [None]
  - NAUSEA [None]
  - VERTIGO [None]
  - VOMITING [None]
